FAERS Safety Report 22778375 (Version 5)
Quarter: 2023Q4

REPORT INFORMATION
  Report Type: Spontaneous
  Country: RS (occurrence: RS)
  Receive Date: 20230802
  Receipt Date: 20231003
  Transmission Date: 20240110
  Serious: Yes (Other)
  Sender: FDA-Public Use
  Company Number: RS-009507513-2306SRB007914

PATIENT
  Age: 62 Year
  Sex: Male
  Weight: 102 kg

DRUGS (9)
  1. KEYTRUDA [Suspect]
     Active Substance: PEMBROLIZUMAB
     Dosage: Q3W
     Route: 042
     Dates: start: 20230308
  2. KEYTRUDA [Suspect]
     Active Substance: PEMBROLIZUMAB
     Dosage: 4TH CYCLE
     Route: 042
     Dates: start: 20230512
  3. KEYTRUDA [Suspect]
     Active Substance: PEMBROLIZUMAB
     Dosage: UNK
     Route: 042
     Dates: start: 20230614
  4. CISPLATIN [Concomitant]
     Active Substance: CISPLATIN
     Indication: Head and neck cancer
     Dosage: UNK UNK, Q3W
     Route: 042
     Dates: end: 20230614
  5. CISPLATIN [Concomitant]
     Active Substance: CISPLATIN
     Dosage: UNK UNK, Q3W
     Route: 042
     Dates: end: 20230614
  6. FLUOROURACIL SODIUM [Concomitant]
     Active Substance: FLUOROURACIL SODIUM
     Indication: Head and neck cancer
     Dosage: 24 H CONTINOUS INFUSION FOR 4 DAYS/EVERY 3 WEEKS
     Route: 042
     Dates: end: 20230614
  7. FLUOROURACIL SODIUM [Concomitant]
     Active Substance: FLUOROURACIL SODIUM
     Dosage: 24 H CONTINOUS INFUSION FOR 4 DAYS/EVERY 3 WEEKS
     Route: 042
     Dates: end: 20230614
  8. RAMIPRIL [Concomitant]
     Active Substance: RAMIPRIL
     Indication: Hypertension
     Dosage: 2.5 MILLIGRAM, QD
     Dates: start: 20230301
  9. METFORMIN [Concomitant]
     Active Substance: METFORMIN HYDROCHLORIDE
     Indication: Type 2 diabetes mellitus
     Dosage: 2000 MILLIGRAM, QD
     Dates: start: 20230301

REACTIONS (13)
  - Autoimmune hepatitis [Unknown]
  - Aspartate aminotransferase increased [Recovering/Resolving]
  - Alanine aminotransferase increased [Recovering/Resolving]
  - Gamma-glutamyltransferase increased [Recovering/Resolving]
  - Blood lactate dehydrogenase increased [Recovering/Resolving]
  - Abdominal pain [Recovered/Resolved]
  - Neutropenia [Unknown]
  - Hepatitis B surface antigen positive [Unknown]
  - Nausea [Unknown]
  - Anaemia [Unknown]
  - C-reactive protein abnormal [Unknown]
  - Musculoskeletal chest pain [Unknown]
  - Therapy partial responder [Unknown]

NARRATIVE: CASE EVENT DATE: 20230101
